FAERS Safety Report 18775726 (Version 1)
Quarter: 2021Q1

REPORT INFORMATION
  Report Type: Spontaneous
  Country: US (occurrence: US)
  Receive Date: 20210122
  Receipt Date: 20210122
  Transmission Date: 20210419
  Serious: No
  Sender: FDA-Public Use
  Company Number: US-SPROUT PHARMACEUTICALS, INC.-2020SP000217

PATIENT
  Age: 37 Year
  Sex: Female
  Weight: 68.1 kg

DRUGS (4)
  1. ADDYI [Suspect]
     Active Substance: FLIBANSERIN
     Route: 048
     Dates: start: 202012
  2. SPIRONOLACTONE. [Concomitant]
     Active Substance: SPIRONOLACTONE
     Indication: ACNE
     Dates: start: 2019
  3. ESTROGEN [Concomitant]
     Active Substance: ESTROGENS
     Indication: BLOOD OESTROGEN DECREASED
  4. ADDYI [Suspect]
     Active Substance: FLIBANSERIN
     Indication: LIBIDO DECREASED
     Route: 048
     Dates: start: 202011, end: 202012

REACTIONS (6)
  - Intentional product use issue [Not Recovered/Not Resolved]
  - Fatigue [Not Recovered/Not Resolved]
  - Therapeutic response decreased [Not Recovered/Not Resolved]
  - Hypotension [Recovered/Resolved]
  - Dizziness [Recovered/Resolved]
  - Somnolence [Not Recovered/Not Resolved]

NARRATIVE: CASE EVENT DATE: 2020
